FAERS Safety Report 19359739 (Version 1)
Quarter: 2021Q2

REPORT INFORMATION
  Report Type: Report from Study
  Country: DE (occurrence: DE)
  Receive Date: 20210602
  Receipt Date: 20210602
  Transmission Date: 20210717
  Serious: Yes (Other)
  Sender: FDA-Public Use
  Company Number: PT-SUNOVION-2021SUN002062

PATIENT

DRUGS (1)
  1. ZEBINIX [Suspect]
     Active Substance: ESLICARBAZEPINE ACETATE
     Indication: EPILEPSY
     Dosage: UNK, UNKNOWN
     Route: 048

REACTIONS (6)
  - Muscle twitching [Unknown]
  - Confusional state [Unknown]
  - Drug ineffective [Unknown]
  - Disorientation [Unknown]
  - Suicidal ideation [Unknown]
  - Tonic clonic movements [Unknown]

NARRATIVE: CASE EVENT DATE: 202105
